FAERS Safety Report 9314715 (Version 2)
Quarter: 2013Q2

REPORT INFORMATION
  Report Type: Spontaneous
  Country: US (occurrence: US)
  Receive Date: 20130529
  Receipt Date: 20130618
  Transmission Date: 20140414
  Serious: Yes (Death, Other)
  Sender: FDA-Public Use
  Company Number: US-TEVA-407220USA

PATIENT
  Sex: Male

DRUGS (4)
  1. ACTIQ [Suspect]
     Indication: PAIN
     Route: 048
  2. HYDROMORPHONE [Concomitant]
  3. CLONIDINE [Concomitant]
  4. BUPIVACAINE [Concomitant]

REACTIONS (4)
  - Death [Fatal]
  - Metastases to rectum [Unknown]
  - Gait disturbance [Unknown]
  - Confusional state [Unknown]
